FAERS Safety Report 20299413 (Version 1)
Quarter: 2022Q1

REPORT INFORMATION
  Report Type: Spontaneous
  Country: US (occurrence: None)
  Receive Date: 20220104
  Receipt Date: 20220104
  Transmission Date: 20220423
  Serious: Yes (Life-Threatening, Hospitalization, Disabling)
  Sender: FDA-Public Use
  Company Number: None

PATIENT
  Age: 38 Year
  Sex: Female

DRUGS (1)
  1. DULOXETINE [Suspect]
     Active Substance: DULOXETINE
     Indication: Fibromyalgia

REACTIONS (12)
  - Hypertension [None]
  - Hepatic enzyme increased [None]
  - Vascular dissection [None]
  - Insomnia [None]
  - Night sweats [None]
  - Amnesia [None]
  - Confusional state [None]
  - Clumsiness [None]
  - Fatigue [None]
  - Dizziness [None]
  - Anxiety [None]
  - Suicidal ideation [None]

NARRATIVE: CASE EVENT DATE: 20210701
